FAERS Safety Report 9636687 (Version 2)
Quarter: 2013Q4

REPORT INFORMATION
  Report Type: Spontaneous
  Country: AT (occurrence: AT)
  Receive Date: 20131021
  Receipt Date: 20131024
  Transmission Date: 20140711
  Serious: Yes (Death)
  Sender: FDA-Public Use
  Company Number: AT-MERCK-1310AUT008044

PATIENT
  Age: 4 Year
  Sex: Male

DRUGS (2)
  1. EZETIMIBE [Suspect]
     Indication: TYPE IIA HYPERLIPIDAEMIA
     Route: 048
  2. ATORVASTATIN [Concomitant]
     Indication: TYPE IIA HYPERLIPIDAEMIA

REACTIONS (1)
  - Drug ineffective [Fatal]
